FAERS Safety Report 24647060 (Version 1)
Quarter: 2024Q4

REPORT INFORMATION
  Report Type: Spontaneous
  Country: GB (occurrence: GB)
  Receive Date: 20241121
  Receipt Date: 20241121
  Transmission Date: 20250115
  Serious: Yes (Hospitalization, Other)
  Sender: PFIZER
  Company Number: None

PATIENT
  Age: 14 Year
  Sex: Female
  Weight: 39 kg

DRUGS (1)
  1. RITUXIMAB [Suspect]
     Active Substance: RITUXIMAB
     Indication: Systemic lupus erythematosus
     Dosage: 500 MG
     Dates: start: 20241104

REACTIONS (10)
  - Serum sickness [Recovering/Resolving]
  - Chest pain [Unknown]
  - Arthralgia [Unknown]
  - Pyrexia [Unknown]
  - Cough [Unknown]
  - Urticaria [Unknown]
  - Erythema [Unknown]
  - Nausea [Unknown]
  - Oropharyngeal discomfort [Unknown]
  - Off label use [Unknown]

NARRATIVE: CASE EVENT DATE: 20241104
